FAERS Safety Report 6314209-3 (Version None)
Quarter: 2009Q3

REPORT INFORMATION
  Report Type: 
  Country: None (occurrence: None)
  Receive Date: 20090817
  Receipt Date: 20090731
  Transmission Date: 20100115
  Serious: No
  Sender: FDA-Public Use
  Company Number: 8049736

PATIENT
  Sex: Male
  Weight: 89.8 kg

DRUGS (7)
  1. KEPPRA [Suspect]
     Indication: CONVULSION
     Dosage: PO
     Route: 048
     Dates: start: 20070101, end: 20090701
  2. KEPPRA [Suspect]
     Dosage: PO
     Route: 048
     Dates: start: 20090701
  3. TOPAMAX [Concomitant]
  4. NORVASC [Concomitant]
  5. COUMADIN [Concomitant]
  6. HYDROCHLOROTHIAZIDE [Concomitant]
  7. ASPIRIN [Concomitant]

REACTIONS (5)
  - CONDITION AGGRAVATED [None]
  - CONVULSION [None]
  - DIZZINESS [None]
  - HYPOAESTHESIA [None]
  - PARAESTHESIA [None]
